FAERS Safety Report 25127843 (Version 2)
Quarter: 2025Q3

REPORT INFORMATION
  Report Type: Report from Study
  Country: IN (occurrence: IN)
  Receive Date: 20250327
  Receipt Date: 20250802
  Transmission Date: 20251020
  Serious: Yes (Other)
  Sender: ALEXION PHARMACEUTICALS
  Company Number: IN-AstraZeneca-CH-00831804A

PATIENT
  Age: 80 Year
  Sex: Female

DRUGS (1)
  1. DURVALUMAB [Suspect]
     Active Substance: DURVALUMAB
     Indication: Biliary tract infection
     Dosage: 1500 MILLIGRAM, Q3W

REACTIONS (1)
  - Eye infection intraocular [Unknown]

NARRATIVE: CASE EVENT DATE: 20250317
